FAERS Safety Report 6420546-4 (Version None)
Quarter: 2009Q4

REPORT INFORMATION
  Report Type: 
  Country: None (occurrence: None)
  Receive Date: 20091027
  Receipt Date: 20091019
  Transmission Date: 20100525
  Serious: Yes (Other)
  Sender: FDA-Public Use
  Company Number: 2009AL006698

PATIENT
  Sex: Male

DRUGS (5)
  1. METFORMIN HCL [Suspect]
  2. TRAMADOL HYDROCHLORIDE [Suspect]
  3. LOSARTAN [Concomitant]
  4. SIMVASTATIN [Concomitant]
  5. BENDROFLUMETHIAZIDE [Concomitant]

REACTIONS (4)
  - ASTHENIA [None]
  - DECREASED APPETITE [None]
  - DRUG INTERACTION [None]
  - NAUSEA [None]
